FAERS Safety Report 10194918 (Version 1)
Quarter: 2014Q2

REPORT INFORMATION
  Report Type: Spontaneous
  Country: US (occurrence: US)
  Receive Date: 20140526
  Receipt Date: 20140526
  Transmission Date: 20141212
  Serious: No
  Sender: FDA-Public Use
  Company Number: US-PFIZER INC-2014140361

PATIENT
  Age: 48 Year
  Sex: Female
  Weight: 55.33 kg

DRUGS (2)
  1. LYRICA [Suspect]
     Indication: HERPES ZOSTER
     Dosage: 75 MG, 2X/DAY
     Dates: end: 20130901
  2. LYRICA [Suspect]
     Indication: FIBROMYALGIA
     Dosage: UNK
     Dates: start: 20140512

REACTIONS (2)
  - Drug withdrawal syndrome [Recovered/Resolved]
  - Intentional product misuse [Unknown]
